FAERS Safety Report 4681171-9 (Version None)
Quarter: 2005Q2

REPORT INFORMATION
  Report Type: 
  Country: None (occurrence: None)
  Receive Date: 20050603
  Receipt Date: 20050511
  Transmission Date: 20051028
  Serious: Yes (Hospitalization, Disabling, Other)
  Sender: FDA-Public Use
  Company Number: FR-BRISTOL-MYERS SQUIBB COMPANY-12963385

PATIENT
  Age: 68 Year
  Sex: Male

DRUGS (6)
  1. VASTEN [Suspect]
     Indication: HYPERCHOLESTEROLAEMIA
     Route: 048
     Dates: start: 19980901, end: 20050501
  2. ASPIRIN [Concomitant]
     Route: 048
  3. CELECTOL [Concomitant]
     Indication: MYOCARDIAL ISCHAEMIA
     Route: 048
     Dates: start: 19940101
  4. NITRODERM [Concomitant]
     Indication: MYOCARDIAL ISCHAEMIA
     Route: 003
     Dates: start: 19940101
  5. ASPEGIC 325 [Concomitant]
     Indication: MYOCARDIAL ISCHAEMIA
     Route: 048
     Dates: start: 19940101
  6. SYMBICORT [Concomitant]
     Indication: ASTHMA EXERCISE INDUCED
     Route: 055
     Dates: start: 20040501

REACTIONS (1)
  - TENDON RUPTURE [None]
